FAERS Safety Report 20156447 (Version 1)
Quarter: 2021Q4

REPORT INFORMATION
  Report Type: Spontaneous
  Country: US (occurrence: None)
  Receive Date: 20211207
  Receipt Date: 20211207
  Transmission Date: 20220303
  Serious: Yes (Hospitalization)
  Sender: FDA-Public Use
  Company Number: None

PATIENT
  Sex: Female
  Weight: 49.8 kg

DRUGS (1)
  1. BEVACIZUMAB [Suspect]
     Active Substance: BEVACIZUMAB
     Dates: end: 20211110

REACTIONS (5)
  - Constipation [None]
  - Vomiting [None]
  - Ileus [None]
  - Disease progression [None]
  - Small intestinal obstruction [None]

NARRATIVE: CASE EVENT DATE: 20211119
